FAERS Safety Report 8726283 (Version 2)
Quarter: 2012Q4

REPORT INFORMATION
  Report Type: 
  Country: MX (occurrence: MX)
  Receive Date: 20120816
  Receipt Date: 20120906
  Transmission Date: 20130627
  Serious: Yes (Death, Hospitalization)
  Sender: FDA-Public Use
  Company Number: PHHY2012MX070136

PATIENT
  Age: 75 Year
  Sex: Male

DRUGS (1)
  1. EXELON PATCH [Suspect]
     Indication: DEMENTIA ALZHEIMER^S TYPE
     Dosage: 9.5 mg, daily
     Route: 062
     Dates: start: 20120704

REACTIONS (2)
  - Respiratory failure [Fatal]
  - Myocardial infarction [Unknown]
